FAERS Safety Report 10696092 (Version 1)
Quarter: 2015Q1

REPORT INFORMATION
  Report Type: Spontaneous
  Country: US (occurrence: US)
  Receive Date: 20150107
  Receipt Date: 20150107
  Transmission Date: 20150721
  Serious: No
  Sender: FDA-Public Use
  Company Number: US-EISAI MEDICAL RESEARCH-E0801-00006-SPO-US

PATIENT
  Sex: Female

DRUGS (1)
  1. HEXALEN [Suspect]
     Active Substance: ALTRETAMINE
     Indication: NEOPLASM MALIGNANT
     Dosage: UNKNOWN
     Route: 048

REACTIONS (2)
  - Drug ineffective [Unknown]
  - Neuropathy peripheral [Unknown]
